FAERS Safety Report 18543690 (Version 1)
Quarter: 2020Q4

REPORT INFORMATION
  Report Type: Spontaneous
  Country: US (occurrence: US)
  Receive Date: 20201124
  Receipt Date: 20201124
  Transmission Date: 20210114
  Serious: No
  Sender: FDA-Public Use
  Company Number: US-JNJFOC-20201137116

PATIENT
  Age: 62 Year
  Sex: Male

DRUGS (1)
  1. ABIRATERONE ACETATE. [Suspect]
     Active Substance: ABIRATERONE ACETATE
     Indication: SALIVARY GLAND CANCER
     Route: 048
     Dates: start: 201507, end: 201604

REACTIONS (2)
  - Off label use [Unknown]
  - Intentional product use issue [Unknown]
